FAERS Safety Report 4763594-2 (Version None)
Quarter: 2005Q3

REPORT INFORMATION
  Report Type: 
  Country: None (occurrence: None)
  Receive Date: 20050908
  Receipt Date: 20050826
  Transmission Date: 20060218
  Serious: Yes (Other)
  Sender: FDA-Public Use
  Company Number: US-KINGPHARMUSA00001-K200501125

PATIENT
  Age: 53 Year
  Sex: Male

DRUGS (5)
  1. ALTACE [Suspect]
     Indication: HYPERTENSION
     Dosage: 1.25 MG, QD
     Dates: start: 20050428, end: 20050725
  2. RANITIDINE [Concomitant]
     Indication: PROPHYLAXIS
     Dosage: 150 MG, BID
     Route: 048
  3. PROPRANOLOL [Concomitant]
     Dosage: 40 MG, BID
  4. ASPIRIN [Concomitant]
     Dosage: 75 MG, QD
  5. VALPROIC ACID [Concomitant]
     Indication: EPILEPSY
     Dosage: 500 MG, BID

REACTIONS (3)
  - BLOOD AMYLASE INCREASED [None]
  - CHEST PAIN [None]
  - PANCREATITIS [None]
